FAERS Safety Report 9098514 (Version 1)
Quarter: 2013Q1

REPORT INFORMATION
  Report Type: Spontaneous
  Country: JP (occurrence: JP)
  Receive Date: 20130213
  Receipt Date: 20130213
  Transmission Date: 20140127
  Serious: Yes (Other)
  Sender: FDA-Public Use
  Company Number: PHHY2013JP012447

PATIENT
  Age: 18 Year
  Sex: Female

DRUGS (5)
  1. CICLOSPORIN [Suspect]
     Indication: RENAL TRANSPLANT
     Dosage: 1 DF, QD
     Route: 048
  2. METHYLPREDNISOLONE [Suspect]
     Indication: RENAL TRANSPLANT
     Dosage: 20 MG/KG, QD
     Route: 048
  3. METHYLPREDNISOLONE [Suspect]
     Dosage: 4 MG/KG, QD
     Route: 048
  4. MYCOPHENOLATE MOFETIL [Suspect]
     Indication: RENAL TRANSPLANT
  5. BASILIXIMAB [Suspect]
     Indication: RENAL TRANSPLANT

REACTIONS (5)
  - Nephropathy toxic [Unknown]
  - Renal graft loss [Unknown]
  - Focal segmental glomerulosclerosis [Unknown]
  - Nephrosclerosis [Unknown]
  - Drug ineffective [Unknown]
